FAERS Safety Report 9394935 (Version 2)
Quarter: 2013Q3

REPORT INFORMATION
  Report Type: Spontaneous
  Country: US (occurrence: US)
  Receive Date: 20130711
  Receipt Date: 20130904
  Transmission Date: 20140515
  Serious: Yes (Other)
  Sender: FDA-Public Use
  Company Number: US-ALLERGAN-1309784US

PATIENT
  Age: 66 Year
  Sex: Female

DRUGS (3)
  1. RESTASIS [Suspect]
     Indication: DRY EYE
     Dosage: 2 GTT, BID
     Route: 047
  2. GENTEAL [Concomitant]
     Indication: DRY EYE
     Dosage: UNK
     Route: 047
  3. THERATEARS [Concomitant]
     Indication: DRY EYE
     Dosage: UNK
     Route: 047

REACTIONS (4)
  - Cataract [Unknown]
  - Malaise [Unknown]
  - Drug dose omission [Unknown]
  - Instillation site pain [Recovered/Resolved]
